FAERS Safety Report 7033311-4 (Version None)
Quarter: 2010Q4

REPORT INFORMATION
  Report Type: 
  Country: None (occurrence: None)
  Receive Date: 20101007
  Receipt Date: 20100930
  Transmission Date: 20110411
  Serious: Yes (Hospitalization)
  Sender: FDA-Public Use
  Company Number: B0677622A

PATIENT
  Age: 64 Year
  Sex: Female
  Weight: 48 kg

DRUGS (14)
  1. VALTREX [Suspect]
     Indication: HERPES ZOSTER
     Dosage: 3000MG PER DAY
     Route: 048
     Dates: start: 20100914, end: 20100915
  2. VALTREX [Suspect]
     Dosage: 1500MG PER DAY
     Route: 048
     Dates: start: 20100915, end: 20100915
  3. YOUCOBAL [Concomitant]
     Route: 048
  4. OMEPRAL [Concomitant]
     Route: 048
  5. UNKNOWN DRUG [Concomitant]
     Route: 048
  6. SENNOSIDE [Concomitant]
     Route: 048
  7. PRECIPITATED CALCIUM CARBONATE [Concomitant]
     Route: 048
  8. AMLODIPINE BESYLATE [Concomitant]
     Route: 048
  9. DIOVAN [Concomitant]
     Route: 048
  10. ALLOZYM [Concomitant]
     Route: 048
  11. PRAVASTATIN [Concomitant]
     Route: 048
  12. SEFTAC [Concomitant]
     Route: 048
  13. PYRINAZIN [Concomitant]
     Route: 048
  14. PENLES [Concomitant]
     Route: 062

REACTIONS (2)
  - RESTLESSNESS [None]
  - VOMITING [None]
